FAERS Safety Report 8357416-0 (Version None)
Quarter: 2012Q2

REPORT INFORMATION
  Report Type: 
  Country: None (occurrence: None)
  Receive Date: 20120510
  Receipt Date: 20120501
  Transmission Date: 20120825
  Serious: Yes (Other)
  Sender: FDA-Public Use
  Company Number: 2012SP023204

PATIENT
  Age: 48 Year
  Sex: Female
  Weight: 70 kg

DRUGS (11)
  1. DOCUSATE [Concomitant]
  2. DOMPERIDONE (DOMPERIDONE) [Suspect]
     Indication: PRODUCT USED FOR UNKNOWN INDICATION
     Dosage: 20 MG;PO
     Route: 048
  3. PACLITAXEL [Suspect]
     Indication: BREAST CANCER
     Dosage: 315 MG;IV ; 300 MG;IV
     Route: 042
     Dates: start: 20110621, end: 20110705
  4. PACLITAXEL [Suspect]
     Indication: BREAST CANCER
     Dosage: 315 MG;IV ; 300 MG;IV
     Route: 042
     Dates: start: 20110524, end: 20110607
  5. DEXAMETHASONE SODIUM PHOSPHATE [Suspect]
     Indication: PRODUCT USED FOR UNKNOWN INDICATION
     Dosage: 20 MG;IV
     Route: 042
  6. NEULASTA [Suspect]
     Indication: CHEMOTHERAPY
     Dosage: 6 MG;SC
     Route: 058
  7. GRANISETRON [Suspect]
     Indication: PRODUCT USED FOR UNKNOWN INDICATION
     Dosage: 1 MG;BID;PO
     Route: 048
  8. RANITIDINE [Suspect]
     Indication: PRODUCT USED FOR UNKNOWN INDICATION
     Dosage: 50 MG;IV
     Route: 042
  9. BIOTENE /00203502/ [Concomitant]
  10. DEXAMETHASONE [Suspect]
     Indication: PRODUCT USED FOR UNKNOWN INDICATION
     Dosage: 4 MG;BID;PO
     Route: 048
  11. CHLORPHENIRAMINE MALEATE [Suspect]
     Indication: PRODUCT USED FOR UNKNOWN INDICATION
     Dosage: 10 MG;IV
     Route: 042

REACTIONS (4)
  - FATIGUE [None]
  - DYSPNOEA [None]
  - CHEST DISCOMFORT [None]
  - CHEST PAIN [None]
